FAERS Safety Report 8484692-6 (Version None)
Quarter: 2012Q3

REPORT INFORMATION
  Report Type: 
  Country: None (occurrence: None)
  Receive Date: 20120703
  Receipt Date: 20120501
  Transmission Date: 20120928
  Serious: No
  Sender: FDA-Public Use
  Company Number: US-TEVA-336355USA

PATIENT
  Sex: Male

DRUGS (3)
  1. NUVIGIL [Suspect]
     Indication: NARCOLEPSY
     Dosage: EVERY AM
     Route: 048
     Dates: start: 20120401, end: 20120401
  2. TERAZOSIN HCL [Concomitant]
  3. PRAVASTATIN [Concomitant]

REACTIONS (1)
  - DIZZINESS [None]
